FAERS Safety Report 5523301-2 (Version None)
Quarter: 2007Q4

REPORT INFORMATION
  Report Type: 
  Country: None (occurrence: None)
  Receive Date: 20071121
  Receipt Date: 20071116
  Transmission Date: 20080405
  Serious: Yes (Hospitalization)
  Sender: FDA-Public Use
  Company Number: ES-GENENTECH-251460

PATIENT
  Sex: Female

DRUGS (1)
  1. RAPTIVA [Suspect]
     Indication: PSORIASIS
     Dosage: 0.7 ML, 1/WEEK
     Route: 058
     Dates: start: 20070401, end: 20070507

REACTIONS (3)
  - DYSPNOEA [None]
  - PANNICULITIS [None]
  - PYREXIA [None]
